FAERS Safety Report 25185830 (Version 1)
Quarter: 2025Q2

REPORT INFORMATION
  Report Type: Spontaneous
  Country: PT (occurrence: PT)
  Receive Date: 20250410
  Receipt Date: 20250410
  Transmission Date: 20250717
  Serious: Yes (Death, Hospitalization, Other)
  Sender: DAIICHI
  Company Number: PT-DSJP-DS-2025-135136-PT

PATIENT
  Sex: Female

DRUGS (2)
  1. TRASTUZUMAB DERUXTECAN [Suspect]
     Active Substance: TRASTUZUMAB DERUXTECAN
     Indication: Hormone receptor positive HER2 negative breast cancer
     Route: 065
     Dates: start: 20250320, end: 20250320
  2. TRASTUZUMAB DERUXTECAN [Suspect]
     Active Substance: TRASTUZUMAB DERUXTECAN
     Indication: Metastatic lymphoma

REACTIONS (2)
  - Hepatotoxicity [Fatal]
  - Malaise [Unknown]

NARRATIVE: CASE EVENT DATE: 20250328
